FAERS Safety Report 24354374 (Version 1)
Quarter: 2024Q3

REPORT INFORMATION
  Report Type: Spontaneous
  Country: FR (occurrence: FR)
  Receive Date: 20240923
  Receipt Date: 20240923
  Transmission Date: 20241016
  Serious: Yes (Life-Threatening, Hospitalization)
  Sender: MYLAN
  Company Number: None

PATIENT
  Age: 29 Year
  Sex: Female
  Weight: 79 kg

DRUGS (12)
  1. MIDAZOLAM [Suspect]
     Active Substance: MIDAZOLAM
     Indication: Anaesthesia
     Dosage: 2 MILLIGRAM, TOTAL
     Route: 042
     Dates: start: 20240419, end: 20240419
  2. NEFOPAM [Suspect]
     Active Substance: NEFOPAM
     Indication: Anaesthesia
     Dosage: 20 MILLIGRAM, TOTAL
     Route: 042
     Dates: start: 20240419, end: 20240419
  3. DEXAMETHASONE [Suspect]
     Active Substance: DEXAMETHASONE
     Indication: Anaesthesia
     Dosage: 8 MILLIGRAM, TOTAL
     Route: 042
     Dates: start: 20240419, end: 20240419
  4. CEFAZOLIN [Suspect]
     Active Substance: CEFAZOLIN
     Indication: Antibiotic prophylaxis
     Dosage: 2 GRAM, TOTAL
     Route: 042
     Dates: start: 20240419, end: 20240419
  5. PROPOFOL [Suspect]
     Active Substance: PROPOFOL
     Indication: Anaesthesia
     Dosage: 160 MILLIGRAM, TOTAL
     Route: 042
     Dates: start: 20240419, end: 20240419
  6. EPINEPHRINE\LIDOCAINE [Suspect]
     Active Substance: EPINEPHRINE\LIDOCAINE
     Indication: Anaesthesia
     Dosage: UNK
     Route: 065
     Dates: start: 20240419, end: 20240419
  7. KETAMINE [Suspect]
     Active Substance: KETAMINE
     Indication: Anaesthesia
     Dosage: 15 MILLIGRAM, TOTAL
     Route: 042
     Dates: start: 20240419, end: 20240419
  8. ROPIVACAINE HYDROCHLORIDE [Suspect]
     Active Substance: ROPIVACAINE HYDROCHLORIDE
     Indication: Anaesthesia
     Dosage: UNK
     Route: 065
     Dates: start: 20240419, end: 20240419
  9. ATRACURIUM [Suspect]
     Active Substance: ATRACURIUM
     Indication: Anaesthesia
     Dosage: 25 MILLIGRAM, TOTAL
     Route: 042
     Dates: start: 20240419, end: 20240419
  10. ACETAMINOPHEN [Suspect]
     Active Substance: ACETAMINOPHEN
     Indication: Anaesthesia
     Dosage: 1 GRAM, TOTAL
     Route: 042
     Dates: start: 20240419, end: 20240419
  11. SUFENTANIL [Concomitant]
     Active Substance: SUFENTANIL
     Indication: Anaesthesia
     Dosage: 15 MICROGRAM, TOTAL
     Route: 042
     Dates: start: 20240419, end: 20240419
  12. SODIUM CHLORIDE [Concomitant]
     Active Substance: SODIUM CHLORIDE
     Dosage: 500 MILLILITER, TOTAL
     Route: 042
     Dates: start: 20240419, end: 20240419

REACTIONS (1)
  - Anaphylactic reaction [Recovered/Resolved]
